FAERS Safety Report 7747316-9 (Version None)
Quarter: 2011Q3

REPORT INFORMATION
  Report Type: 
  Country: None (occurrence: None)
  Receive Date: 20110907
  Receipt Date: 20110823
  Transmission Date: 20111222
  Serious: Yes (Death)
  Sender: FDA-Public Use
  Company Number: GER/UKI/11/0020785

PATIENT
  Age: 15 Year
  Sex: Female

DRUGS (2)
  1. ST.JOHNS WORT [Suspect]
     Indication: PRODUCT USED FOR UNKNOWN INDICATION
     Dates: start: 20110426, end: 20110501
  2. FLUOXETINE [Suspect]
     Indication: DEPRESSION
     Dosage: 20 MG, ORAL
     Route: 048
     Dates: start: 20110426, end: 20110501

REACTIONS (1)
  - COMPLETED SUICIDE [None]
